FAERS Safety Report 5040362-8 (Version None)
Quarter: 2006Q2

REPORT INFORMATION
  Report Type: 
  Country: None (occurrence: None)
  Receive Date: 20060630
  Receipt Date: 20060622
  Transmission Date: 20061013
  Serious: Yes (Other)
  Sender: FDA-Public Use
  Company Number: US-GLAXOSMITHKLINE-A0610620A

PATIENT
  Age: 81 Year
  Sex: Female

DRUGS (6)
  1. OASIS MOISTURIZING MOUTH SPRAY [Suspect]
     Indication: DRY MOUTH
     Dates: start: 20060612, end: 20060612
  2. BLOOD PRESSURE MEDICATION [Concomitant]
  3. DIABETES MEDICATION [Concomitant]
  4. HEART MEDICATION [Concomitant]
  5. MULTIPLE VITAMIN [Concomitant]
  6. ASPIRIN [Concomitant]

REACTIONS (6)
  - CHOKING SENSATION [None]
  - COUGH [None]
  - DYSPNOEA [None]
  - HEART RATE INCREASED [None]
  - NAUSEA [None]
  - STRESS INCONTINENCE [None]
